FAERS Safety Report 24843094 (Version 1)
Quarter: 2025Q1

REPORT INFORMATION
  Report Type: Report from Study
  Country: US (occurrence: US)
  Receive Date: 20250115
  Receipt Date: 20250115
  Transmission Date: 20250409
  Serious: No
  Sender: HRA PHARMA
  Company Number: US-ORG100014127-2024000363

PATIENT
  Age: 47 Year
  Sex: Male

DRUGS (9)
  1. LYSODREN [Suspect]
     Active Substance: MITOTANE
     Indication: Adrenal gland cancer
     Dosage: 4 TABLETS TWICE DAILY
     Route: 048
     Dates: start: 20230420
  2. LYSODREN [Suspect]
     Active Substance: MITOTANE
     Indication: Adrenal gland cancer
     Dosage: 5 TABLETS TWICE DAILY
     Route: 048
  3. LYSODREN [Suspect]
     Active Substance: MITOTANE
     Indication: Adrenal gland cancer
     Dosage: 4 TABLETS EVERY MORNING AND 5 TABLETS EVERY EVENING
     Route: 048
  4. ENOXAPARIN INJ 40/0.4ML [Concomitant]
     Indication: Product used for unknown indication
  5. IBUPROFEN [Concomitant]
     Active Substance: IBUPROFEN
     Indication: Product used for unknown indication
  6. ONDANSETRON [Concomitant]
     Active Substance: ONDANSETRON
     Indication: Product used for unknown indication
  7. XYOSTED INJ 75/0.5 [Concomitant]
     Indication: Product used for unknown indication
  8. LEVOTHYROXIN TAB 100MCG [Concomitant]
     Indication: Product used for unknown indication
  9. LEVOTHYROXIN TAB 75MCG [Concomitant]
     Indication: Product used for unknown indication

REACTIONS (1)
  - Emotional disorder [Unknown]
